FAERS Safety Report 7140930-3 (Version None)
Quarter: 2010Q4

REPORT INFORMATION
  Report Type: 
  Country: None (occurrence: None)
  Receive Date: 20101201
  Receipt Date: 20101201
  Transmission Date: 20110411
  Serious: Yes (Hospitalization)
  Sender: FDA-Public Use
  Company Number: None

PATIENT
  Age: 16 Year
  Sex: Male
  Weight: 65.5 kg

DRUGS (1)
  1. BACTRIM DOUBLE STRENGTH 800/160 SULFAMETHOXAZOLE/TRIMETHOPRIM [Suspect]
     Indication: STAPHYLOCOCCAL SKIN INFECTION
     Dosage: 2 DOUBLE STRENGTH TABLETS TWICE DAILY PO
     Route: 048
     Dates: start: 20101108, end: 20101125

REACTIONS (7)
  - BURNING SENSATION [None]
  - DECREASED APPETITE [None]
  - DYSPHAGIA [None]
  - FATIGUE [None]
  - HEADACHE [None]
  - NAUSEA [None]
  - STEVENS-JOHNSON SYNDROME [None]
